FAERS Safety Report 20429946 (Version 1)
Quarter: 2022Q1

REPORT INFORMATION
  Report Type: Report from Study
  Country: FR (occurrence: FR)
  Receive Date: 20220204
  Receipt Date: 20220204
  Transmission Date: 20220424
  Serious: Yes (Death, Hospitalization)
  Sender: FDA-Public Use
  Company Number: FR-SERVIER-S19004134

PATIENT

DRUGS (8)
  1. ONCASPAR [Suspect]
     Active Substance: PEGASPARGASE
     Indication: Acute lymphocytic leukaemia
     Dosage: 2300 IU ON D12 OF EACH CYCLE
     Route: 042
     Dates: start: 20190217
  2. DEXAMETHASONE [Suspect]
     Active Substance: DEXAMETHASONE
     Indication: Acute lymphocytic leukaemia
     Dosage: 9.2 MG ON D8 TO D28 OF EACH CYCLE
     Route: 048
     Dates: start: 20190113
  3. VINCRISTINE [Suspect]
     Active Substance: VINCRISTINE
     Indication: Acute lymphocytic leukaemia
     Dosage: 1.4 MG ON D1, D15, D22 AND D29
     Route: 042
     Dates: start: 20190113
  4. DAUNORUBICIN [Suspect]
     Active Substance: DAUNORUBICIN
     Indication: Acute lymphocytic leukaemia
     Dosage: 27 MG ON S1, D8 AND D15 OF EACH CYCL
     Route: 042
     Dates: start: 20190113
  5. METHOTREXATE [Suspect]
     Active Substance: METHOTREXATE
     Indication: Acute lymphocytic leukaemia
     Dosage: 12 MG ON D1, D9, D13, D18 AND D24 OF EACH CYCLE
     Route: 037
     Dates: start: 20190109
  6. TN UNSPECIFIED [Concomitant]
     Indication: Product used for unknown indication
  7. PIPERACILLIN SODIUM [Suspect]
     Active Substance: PIPERACILLIN SODIUM
     Indication: Product used for unknown indication
  8. CASPOFUNGIN [Concomitant]
     Active Substance: CASPOFUNGIN
     Indication: Product used for unknown indication

REACTIONS (1)
  - Varicella zoster virus infection [Fatal]

NARRATIVE: CASE EVENT DATE: 20190130
